FAERS Safety Report 6139306-7 (Version None)
Quarter: 2009Q2

REPORT INFORMATION
  Report Type: 
  Country: None (occurrence: None)
  Receive Date: 20090401
  Receipt Date: 20090322
  Transmission Date: 20091009
  Serious: Yes (Hospitalization, Other)
  Sender: FDA-Public Use
  Company Number: US-AMGEN-QUU339526

PATIENT
  Sex: Female

DRUGS (1)
  1. ENBREL [Suspect]
     Indication: PSORIASIS
     Route: 064
     Dates: start: 20040922

REACTIONS (3)
  - FEEDING DISORDER NEONATAL [None]
  - GASTROSCHISIS [None]
  - INTESTINAL FUNCTIONAL DISORDER [None]
